FAERS Safety Report 18706220 (Version 1)
Quarter: 2021Q1

REPORT INFORMATION
  Report Type: Spontaneous
  Country: US (occurrence: US)
  Receive Date: 20210105
  Receipt Date: 20210105
  Transmission Date: 20210419
  Serious: No
  Sender: FDA-Public Use
  Company Number: None

PATIENT
  Age: 72 Year
  Sex: Male

DRUGS (1)
  1. ZYTIGA [Suspect]
     Active Substance: ABIRATERONE ACETATE
     Route: 046
     Dates: start: 202012

REACTIONS (6)
  - Asthenia [None]
  - Peripheral swelling [None]
  - Fatigue [None]
  - Oedema [None]
  - Pneumonia [None]
  - Joint swelling [None]

NARRATIVE: CASE EVENT DATE: 20201205
